FAERS Safety Report 5123283-1 (Version None)
Quarter: 2006Q4

REPORT INFORMATION
  Report Type: 
  Country: None (occurrence: None)
  Receive Date: 20061009
  Receipt Date: 20060929
  Transmission Date: 20070319
  Serious: Yes (Life-Threatening, Hospitalization)
  Sender: FDA-Public Use
  Company Number: FR-GLAXOSMITHKLINE-B0440281A

PATIENT
  Age: 68 Year
  Sex: Female

DRUGS (10)
  1. ZELITREX [Suspect]
     Indication: HERPES ZOSTER
     Dosage: 3G PER DAY
     Route: 048
     Dates: start: 20060721
  2. ALLOPURINOL [Concomitant]
     Dosage: 200MG PER DAY
  3. TRIATEC [Concomitant]
     Dosage: 10MG PER DAY
  4. LOPRESSOR [Concomitant]
     Dosage: 200MG PER DAY
  5. FLUDEX [Concomitant]
     Dosage: 2.5MG PER DAY
  6. ZOCOR [Concomitant]
     Dosage: 1UNIT PER DAY
  7. OMEPRAZOLE [Concomitant]
     Dosage: 20MG PER DAY
  8. RENAGEL [Concomitant]
     Dosage: 3TAB PER DAY
     Route: 048
  9. LOXEN [Concomitant]
     Dosage: 50MG PER DAY
     Route: 048
     Dates: start: 20060722
  10. HYPERIUM [Concomitant]
     Dates: end: 20060722

REACTIONS (10)
  - ANAEMIA [None]
  - CLONUS [None]
  - COMA [None]
  - DEPRESSED LEVEL OF CONSCIOUSNESS [None]
  - ENCEPHALOPATHY [None]
  - HEPATOMEGALY [None]
  - HYPERTENSIVE CRISIS [None]
  - HYPERTONIA [None]
  - NEUROTOXICITY [None]
  - OVERDOSE [None]
